FAERS Safety Report 5987648-8 (Version None)
Quarter: 2008Q4

REPORT INFORMATION
  Report Type: 
  Country: None (occurrence: None)
  Receive Date: 20081209
  Receipt Date: 20081203
  Transmission Date: 20090506
  Serious: Yes (Death, Hospitalization)
  Sender: FDA-Public Use
  Company Number: BR-ROXANE LABORATORIES, INC.-2008-RO-00327RO

PATIENT
  Age: 73 Year
  Sex: Female

DRUGS (6)
  1. ZOLPIDEM [Suspect]
  2. FUROSEMIDE [Suspect]
     Indication: ASCITES
     Dosage: 40MG
  3. QUETIAPINE FUMARATE [Suspect]
     Dosage: 12MG
  4. RIVASTIGMINE [Suspect]
     Dosage: 12MG
  5. SPIROLACTONE [Suspect]
     Indication: ASCITES
     Dosage: 100MG
  6. FLUMAZENIL [Concomitant]
     Route: 042

REACTIONS (6)
  - CRYPTOGENIC CIRRHOSIS [None]
  - DEPRESSED LEVEL OF CONSCIOUSNESS [None]
  - HEPATIC ENCEPHALOPATHY [None]
  - HEPATIC FAILURE [None]
  - HEPATIC NEOPLASM MALIGNANT [None]
  - SEPSIS [None]
